FAERS Safety Report 23045599 (Version 5)
Quarter: 2023Q4

REPORT INFORMATION
  Report Type: Report from Study
  Country: US (occurrence: US)
  Receive Date: 20231009
  Receipt Date: 20231205
  Transmission Date: 20240109
  Serious: No
  Sender: FDA-Public Use
  Company Number: US-SAREPTA THERAPEUTICS INC.-SRP2023-003847

PATIENT
  Age: 24 Year
  Sex: Male
  Weight: 43.3 kg

DRUGS (29)
  1. DELANDISTROGENE MOXEPARVOVEC [Suspect]
     Active Substance: DELANDISTROGENE MOXEPARVOVEC
     Indication: Duchenne muscular dystrophy
     Dosage: 420 MILLILITER, SINGLE
     Route: 042
     Dates: start: 20230814, end: 20230814
  2. DEFLAZACORT [Concomitant]
     Active Substance: DEFLAZACORT
     Indication: Duchenne muscular dystrophy
     Dosage: 24 MILLIGRAM, QD
     Route: 048
     Dates: start: 2011, end: 20230814
  3. DEFLAZACORT [Concomitant]
     Active Substance: DEFLAZACORT
     Dosage: 18 MILLIGRAM, QD
     Route: 048
     Dates: start: 20230815
  4. PREDNISONE [Concomitant]
     Active Substance: PREDNISONE
     Indication: Duchenne muscular dystrophy
     Dosage: 35 MILLIGRAM, QD
     Route: 048
     Dates: start: 20230813, end: 20230814
  5. PREDNISONE [Concomitant]
     Active Substance: PREDNISONE
     Indication: Immune system disorder
     Dosage: 5 MILLIGRAM, QD
     Route: 048
     Dates: start: 20230815, end: 20230927
  6. PREDNISONE [Concomitant]
     Active Substance: PREDNISONE
     Dosage: 80 MILLIGRAM, QD
     Route: 048
     Dates: start: 20230928, end: 20231026
  7. PREDNISONE [Concomitant]
     Active Substance: PREDNISONE
     Dosage: 60 MILLIGRAM, QD
     Route: 048
     Dates: start: 20231027, end: 20231103
  8. PREDNISONE [Concomitant]
     Active Substance: PREDNISONE
     Dosage: 40 MILLIGRAM, QD
     Route: 048
     Dates: start: 20231104, end: 20231116
  9. PREDNISONE [Concomitant]
     Active Substance: PREDNISONE
     Dosage: 40 MILLIGRAM, QD
     Route: 048
     Dates: start: 20231107, end: 20231123
  10. PREDNISONE [Concomitant]
     Active Substance: PREDNISONE
     Dosage: 10 MILLIGRAM, QD
     Route: 048
     Dates: start: 20231124
  11. ASCORBIC ACID [Concomitant]
     Active Substance: ASCORBIC ACID
     Indication: Nutritional supplementation
     Dosage: 1000 MILLIGRAM TABLET, QD
     Route: 048
     Dates: start: 202305
  12. VITAMIN D3 [Concomitant]
     Active Substance: CHOLECALCIFEROL
     Indication: Nutritional supplementation
     Dosage: 2000 MILLIGRAM, CAPSULE QD
     Route: 048
     Dates: start: 20230531
  13. LISINOPRIL [Concomitant]
     Active Substance: LISINOPRIL
     Indication: Duchenne muscular dystrophy
     Dosage: 5 MILLIGRAM, QD
     Route: 048
     Dates: start: 2018
  14. ETEPLIRSEN [Concomitant]
     Active Substance: ETEPLIRSEN
     Indication: Duchenne muscular dystrophy
     Dosage: 30 MG/KG, SOLUTION WEEKLY
     Route: 042
     Dates: start: 2014, end: 20230804
  15. OMEPRAZOLE [Concomitant]
     Active Substance: OMEPRAZOLE
     Indication: Prophylaxis
     Dosage: 40 MILLIGRAM, CAPSULE, QD
     Route: 048
     Dates: start: 2018
  16. SIMETHICONE (DIMETHICONE) [Concomitant]
     Active Substance: DIMETHICONE
     Indication: Constipation
     Dosage: 125 MILLIGRAM, PRN
     Route: 048
     Dates: start: 2018
  17. SPIRONOLACTONE [Concomitant]
     Active Substance: SPIRONOLACTONE
     Indication: Duchenne muscular dystrophy
     Dosage: 25 MILLIGRAM TABLET, QD
     Route: 048
     Dates: start: 2018
  18. PYRIMETHAMINE\SULFADOXINE [Concomitant]
     Active Substance: PYRIMETHAMINE\SULFADOXINE
     Indication: Constipation
     Dosage: 30 MILLILITER, PRN
     Route: 048
     Dates: start: 2023
  19. DOCUSATE [Concomitant]
     Active Substance: DOCUSATE
     Indication: Constipation
     Dosage: 5 MILLIGRAM,TABLET, PRN
     Route: 048
     Dates: start: 2018
  20. ZOFRAN [Concomitant]
     Active Substance: ONDANSETRON HYDROCHLORIDE
     Indication: Prophylaxis of nausea and vomiting
     Dosage: 4 MILLIGRAM, TABLET, PRN
     Route: 048
     Dates: start: 202305
  21. ZOFRAN [Concomitant]
     Active Substance: ONDANSETRON HYDROCHLORIDE
     Dosage: 4 MILLIGRAM, TABLET, PRN
     Route: 048
     Dates: start: 20230814, end: 20230815
  22. ZOFRAN [Concomitant]
     Active Substance: ONDANSETRON HYDROCHLORIDE
     Dosage: 4 MILLIGRAM, TABLET, PRN
     Route: 048
     Dates: start: 20230816, end: 20230818
  23. ZOFRAN [Concomitant]
     Active Substance: ONDANSETRON HYDROCHLORIDE
     Dosage: 4 MILLIGRAM, TABLET, PRN
     Route: 048
     Dates: start: 20230822, end: 20230823
  24. METOPROLOL [Concomitant]
     Active Substance: METOPROLOL
     Indication: Duchenne muscular dystrophy
     Dosage: 50 MILLIGRAM, QD
     Route: 048
     Dates: start: 2018
  25. MIRALAX [Concomitant]
     Active Substance: POLYETHYLENE GLYCOL 3350
     Indication: Constipation
     Dosage: 17 GRAM, PRN
     Route: 048
     Dates: start: 202305
  26. LORATADINE [Concomitant]
     Active Substance: LORATADINE
     Indication: Cough
     Dosage: 10 MILLIGRAM, POWDER, QD
     Route: 048
     Dates: start: 202305
  27. ATIVAN [Concomitant]
     Active Substance: LORAZEPAM
     Indication: Anxiety
     Dosage: 0.5 MILLIGRAM, TABLET, PRN
     Route: 048
     Dates: start: 202306
  28. DRAMAMINE [Concomitant]
     Active Substance: DIMENHYDRINATE
     Indication: Nausea
     Dosage: 50 MILLIGRAM, TABLET, ONCE
     Route: 048
     Dates: start: 20230822, end: 20230822
  29. MULTIVITAMIN IRON [Concomitant]
     Indication: Nutritional supplementation
     Dosage: 15 MILLIGRAM, TABLET, QD
     Route: 048
     Dates: start: 202305

REACTIONS (1)
  - Hepatotoxicity [Not Recovered/Not Resolved]

NARRATIVE: CASE EVENT DATE: 20230926
